FAERS Safety Report 5001475-X (Version None)
Quarter: 2006Q2

REPORT INFORMATION
  Report Type: 
  Country: None (occurrence: None)
  Receive Date: 20060512
  Receipt Date: 20051004
  Transmission Date: 20061013
  Serious: Yes (Hospitalization)
  Sender: FDA-Public Use
  Company Number: US-MERCK-0510USA03325

PATIENT
  Age: 60 Year
  Sex: Female
  Weight: 77 kg

DRUGS (7)
  1. VIOXX [Suspect]
     Indication: BACK PAIN
     Route: 048
     Dates: end: 20041001
  2. PREMARIN [Concomitant]
     Route: 065
  3. LESCOL [Concomitant]
     Route: 065
  4. ALLEGRA [Concomitant]
     Route: 065
  5. SUDAFED [Concomitant]
     Route: 065
  6. SYNTHROID [Concomitant]
     Route: 065
  7. NAPROSYN [Concomitant]
     Route: 065

REACTIONS (4)
  - CORONARY ARTERY STENOSIS [None]
  - DEPRESSION [None]
  - MYOCARDIAL INFARCTION [None]
  - TACHYCARDIA [None]
